FAERS Safety Report 25143629 (Version 1)
Quarter: 2025Q2

REPORT INFORMATION
  Report Type: Report from Study
  Country: DE (occurrence: DE)
  Receive Date: 20250401
  Receipt Date: 20250401
  Transmission Date: 20250716
  Serious: Yes (Other)
  Sender: ROCHE
  Company Number: DE-ROCHE-10000143868

PATIENT
  Age: 82 Year
  Sex: Male
  Weight: 95 kg

DRUGS (4)
  1. EMICIZUMAB [Suspect]
     Active Substance: EMICIZUMAB
     Indication: Acquired haemophilia
     Route: 058
     Dates: start: 20210212, end: 20220216
  2. EMICIZUMAB [Suspect]
     Active Substance: EMICIZUMAB
     Indication: Prophylaxis
     Dosage: LOADING DOSE OF 3 MG/KG PER WEEK OR THE FIRST 3 WEEKS, AND WAS THEN REDUCED TO A MAINTENANCE DOSE OF
     Route: 058
  3. EMICIZUMAB [Suspect]
     Active Substance: EMICIZUMAB
     Route: 058
  4. PREDNISOLONE [Concomitant]
     Active Substance: PREDNISOLONE

REACTIONS (1)
  - Drug specific antibody present [Recovered/Resolved]

NARRATIVE: CASE EVENT DATE: 20210809
